FAERS Safety Report 9241855 (Version 1)
Quarter: 2013Q2

REPORT INFORMATION
  Report Type: Report from Study
  Country: US (occurrence: US)
  Receive Date: 20130419
  Receipt Date: 20130419
  Transmission Date: 20140414
  Serious: Yes (Death)
  Sender: FDA-Public Use
  Company Number: PHEH2013US008674

PATIENT
  Age: 69 Year
  Sex: Male

DRUGS (17)
  1. TASIGNA [Suspect]
     Indication: CHRONIC LEUKAEMIA
     Dosage: 300 MG, BID
     Route: 048
     Dates: start: 20120221
  2. ZETIA [Concomitant]
  3. XANAX [Concomitant]
     Dosage: UNK
  4. HUMULIN R [Concomitant]
  5. LANOXIN [Concomitant]
  6. ZAROXOLYN [Concomitant]
  7. COUMADINE [Concomitant]
  8. NORVASC [Concomitant]
  9. TRICOR [Concomitant]
  10. FLOMAX [Concomitant]
  11. TENEX [Concomitant]
  12. ALLOPURINOL [Concomitant]
  13. POTASSIUM [Concomitant]
  14. LIPITOR [Concomitant]
  15. ATENOLOL [Concomitant]
  16. CARDURA [Concomitant]
  17. BUMETANIDE [Concomitant]

REACTIONS (1)
  - Death [Fatal]
